FAERS Safety Report 11440520 (Version 1)
Quarter: 2015Q3

REPORT INFORMATION
  Report Type: Spontaneous
  Country: US (occurrence: US)
  Receive Date: 20150901
  Receipt Date: 20150901
  Transmission Date: 20151125
  Serious: No
  Sender: FDA-Public Use
  Company Number: US-ROCHE-707272

PATIENT
  Sex: Female
  Weight: 97.1 kg

DRUGS (6)
  1. PEGASYS [Suspect]
     Active Substance: PEGINTERFERON ALFA-2A
     Route: 058
  2. RIBAVIRIN. [Suspect]
     Active Substance: RIBAVIRIN
     Route: 065
  3. PEGASYS [Suspect]
     Active Substance: PEGINTERFERON ALFA-2A
     Indication: CHRONIC HEPATITIS C
     Dosage: ROUTE: INJECTION
     Route: 050
     Dates: start: 200901, end: 201001
  4. RIBAVIRIN. [Suspect]
     Active Substance: RIBAVIRIN
     Indication: CHRONIC HEPATITIS C
     Route: 048
     Dates: start: 200901, end: 201001
  5. TELAPREVIR [Suspect]
     Active Substance: TELAPREVIR
     Indication: CHRONIC HEPATITIS C
  6. MICRONOR [Concomitant]
     Active Substance: NORETHINDRONE
     Dosage: BIRTH CONTROL PILLS
     Route: 065

REACTIONS (15)
  - Alopecia [Unknown]
  - Pain of skin [Unknown]
  - Weight decreased [Unknown]
  - Headache [Unknown]
  - Hepatitis C [Not Recovered/Not Resolved]
  - Amnesia [Unknown]
  - Chills [Unknown]
  - No therapeutic response [Unknown]
  - Fatigue [Unknown]
  - Pyrexia [Unknown]
  - Rash [Unknown]
  - Depression [Unknown]
  - Nausea [Unknown]
  - Vomiting [Unknown]
  - Vision blurred [Unknown]
